FAERS Safety Report 6574989-9 (Version None)
Quarter: 2010Q1

REPORT INFORMATION
  Report Type: 
  Country: None (occurrence: None)
  Receive Date: 20100209
  Receipt Date: 20100203
  Transmission Date: 20100710
  Serious: No
  Sender: FDA-Public Use
  Company Number: US-ROXANE LABORATORIES, INC.-2010-RO-00124RO

PATIENT
  Sex: Female

DRUGS (2)
  1. FLECAINIDE ACETATE [Suspect]
  2. TAMBOCOR [Concomitant]
     Dosage: 75 MG

REACTIONS (1)
  - COUGH [None]
